FAERS Safety Report 6041729-1 (Version None)
Quarter: 2009Q1

REPORT INFORMATION
  Report Type: 
  Country: None (occurrence: None)
  Receive Date: 20090116
  Receipt Date: 20090108
  Transmission Date: 20090719
  Serious: Yes (Hospitalization)
  Sender: FDA-Public Use
  Company Number: GB-ELI_LILLY_AND_COMPANY-GB200901001449

PATIENT
  Sex: Male

DRUGS (2)
  1. HUMALOG MIX 75/25 [Suspect]
     Dosage: UNK, UNK
     Dates: start: 20061101, end: 20070101
  2. HUMALOG [Suspect]
     Dosage: UNK, UNK
     Dates: start: 20070701, end: 20070901

REACTIONS (2)
  - DRUG PRESCRIBING ERROR [None]
  - HOSPITALISATION [None]
